FAERS Safety Report 16301214 (Version 1)
Quarter: 2019Q2

REPORT INFORMATION
  Report Type: Spontaneous
  Country: US (occurrence: US)
  Receive Date: 20190510
  Receipt Date: 20190510
  Transmission Date: 20190711
  Serious: Yes (Hospitalization, Disabling, Other)
  Sender: FDA-Public Use
  Company Number: US-JNJFOC-20190502440

PATIENT
  Age: 36 Year
  Sex: Female
  Weight: 91.17 kg

DRUGS (1)
  1. ELMIRON [Suspect]
     Active Substance: PENTOSAN POLYSULFATE SODIUM
     Indication: CYSTITIS INTERSTITIAL
     Route: 048
     Dates: end: 201904

REACTIONS (16)
  - Ovarian rupture [Unknown]
  - Meningitis bacterial [Recovered/Resolved]
  - Adnexal torsion [Unknown]
  - Cystitis interstitial [Unknown]
  - Conversion disorder [Not Recovered/Not Resolved]
  - Ovarian adhesion [Unknown]
  - Neuropathy peripheral [Unknown]
  - Bladder dilatation [Unknown]
  - Bladder pain [Unknown]
  - Procedural pain [Unknown]
  - Nerve injury [Unknown]
  - Cognitive disorder [Not Recovered/Not Resolved]
  - Chromaturia [Recovered/Resolved]
  - Bipolar I disorder [Not Recovered/Not Resolved]
  - Urinary tract infection [Unknown]
  - Device related sepsis [Recovered/Resolved]

NARRATIVE: CASE EVENT DATE: 201711
